FAERS Safety Report 20741034 (Version 5)
Quarter: 2022Q4

REPORT INFORMATION
  Report Type: Spontaneous
  Country: US (occurrence: US)
  Receive Date: 20220422
  Receipt Date: 20221202
  Transmission Date: 20230113
  Serious: No
  Sender: FDA-Public Use
  Company Number: US-PFIZER INC-202101877101

PATIENT
  Age: 36 Year
  Sex: Male

DRUGS (3)
  1. XELJANZ [Suspect]
     Active Substance: TOFACITINIB CITRATE
     Indication: Colitis ulcerative
     Dosage: 10 MG
     Dates: start: 20211206
  2. XELJANZ [Suspect]
     Active Substance: TOFACITINIB CITRATE
     Dosage: 5 MG, 2X/DAY
     Route: 048
  3. XELJANZ [Suspect]
     Active Substance: TOFACITINIB CITRATE
     Dosage: 10 MG, 2X/DAY

REACTIONS (10)
  - Condition aggravated [Recovering/Resolving]
  - Therapeutic product effect incomplete [Unknown]
  - Product dose omission issue [Unknown]
  - Increased appetite [Unknown]
  - Nausea [Recovering/Resolving]
  - Oedema peripheral [Unknown]
  - Chills [Unknown]
  - Sinusitis [Unknown]
  - Abdominal pain upper [Recovering/Resolving]
  - Frequent bowel movements [Unknown]

NARRATIVE: CASE EVENT DATE: 20210101
